FAERS Safety Report 21454734 (Version 1)
Quarter: 2022Q4

REPORT INFORMATION
  Report Type: Report from Study
  Country: IT (occurrence: IT)
  Receive Date: 20221014
  Receipt Date: 20221014
  Transmission Date: 20230112
  Serious: Yes (Other)
  Sender: FDA-Public Use
  Company Number: IT-CELLTRION INC.-2022IT016361

PATIENT

DRUGS (4)
  1. TRASTUZUMAB [Suspect]
     Active Substance: TRASTUZUMAB
     Indication: HER2 positive breast cancer
     Dosage: 8 MILLIGRAM/KILOGRAM EVERY 3 WEEKS; MOST RECENT DOSE PRIOR TO THE EVENT: 13/FEB/2017
     Route: 065
     Dates: start: 20170119
  2. DOCETAXEL [Suspect]
     Active Substance: DOCETAXEL
     Indication: HER2 positive breast cancer
     Dosage: 105MG EVERY 3 WEEKS; MOST RECENT DOSE PRIOR TO THE EVENT: 09/MAY/2017
     Route: 065
     Dates: start: 20170119
  3. PERTUZUMAB [Suspect]
     Active Substance: PERTUZUMAB
     Indication: HER2 positive breast cancer
     Dosage: 840MG EVERY 3 WEEKS; MOST RECENT DOSE PRIOR TO THE EVENT: 13/FEB/2017
     Route: 065
     Dates: start: 20170119
  4. CHOLECALCIFEROL [Concomitant]
     Active Substance: CHOLECALCIFEROL
     Dosage: ONGOING = CHECKED
     Dates: start: 20170919

REACTIONS (3)
  - Neutropenia [Recovered/Resolved]
  - Anaemia [Not Recovered/Not Resolved]
  - Overdose [Unknown]

NARRATIVE: CASE EVENT DATE: 20220623
